FAERS Safety Report 10560345 (Version 2)
Quarter: 2015Q1

REPORT INFORMATION
  Report Type: Spontaneous
  Country: JP (occurrence: JP)
  Receive Date: 20141103
  Receipt Date: 20150202
  Transmission Date: 20150720
  Serious: Yes (Hospitalization, Other)
  Sender: FDA-Public Use
  Company Number: JP-BAYER-2014-158234

PATIENT
  Age: 24 Year
  Sex: Female

DRUGS (1)
  1. ACETYLSALICYLIC ACID({=100 MG) [Suspect]
     Active Substance: ASPIRIN
     Route: 048

REACTIONS (9)
  - Fall [None]
  - Hypoacusis [Recovering/Resolving]
  - Ear discomfort [None]
  - Toxicity to various agents [None]
  - Coagulopathy [Recovering/Resolving]
  - Renal impairment [Recovering/Resolving]
  - Deafness neurosensory [None]
  - Overdose [None]
  - Inner ear disorder [None]
